FAERS Safety Report 8913313 (Version 6)
Quarter: 2013Q3

REPORT INFORMATION
  Report Type: Report from Study
  Country: AT (occurrence: AT)
  Receive Date: 20121116
  Receipt Date: 20130911
  Transmission Date: 20140515
  Serious: Yes (Hospitalization)
  Sender: FDA-Public Use
  Company Number: AT-VERTEX PHARMACEUTICAL INC.-2012-024729

PATIENT
  Age: 56 Year
  Sex: Male
  Weight: 89 kg

DRUGS (3)
  1. VX-950 (TELAPREVIR) [Suspect]
     Indication: HEPATITIS C
     Dosage: TABLET
     Route: 048
     Dates: start: 20111214, end: 20120307
  2. RIBAVIRIN [Suspect]
     Indication: HEPATITIS
     Dosage: DOSAGE FORM: UNSPECIFIED
     Route: 048
     Dates: start: 20111214
  3. PEG-INTERFERON [Suspect]
     Indication: HEPATITIS
     Dosage: 180 ?G, UNK
     Route: 058
     Dates: start: 20111214

REACTIONS (1)
  - Sudden hearing loss [Recovered/Resolved]
